FAERS Safety Report 22003611 (Version 15)
Quarter: 2024Q1

REPORT INFORMATION
  Report Type: Report from Study
  Country: US (occurrence: US)
  Receive Date: 20230217
  Receipt Date: 20240228
  Transmission Date: 20240410
  Serious: Yes (Other)
  Sender: FDA-Public Use
  Company Number: US-002147023-NVSC2023US036928

PATIENT
  Sex: Female

DRUGS (2)
  1. COSENTYX [Suspect]
     Active Substance: SECUKINUMAB
     Indication: Product used for unknown indication
     Dosage: UNK
     Route: 065
  2. COSENTYX [Suspect]
     Active Substance: SECUKINUMAB
     Dosage: 300 MG
     Route: 065

REACTIONS (13)
  - Lung neoplasm malignant [Unknown]
  - Fall [Unknown]
  - Skin haemorrhage [Unknown]
  - Insomnia [Unknown]
  - Pain [Unknown]
  - Rash [Unknown]
  - Condition aggravated [Unknown]
  - Psoriasis [Unknown]
  - Thermal burn [Unknown]
  - Rib fracture [Unknown]
  - Dyspnoea [Unknown]
  - Device defective [Unknown]
  - Product dose omission issue [Unknown]
